FAERS Safety Report 25075206 (Version 1)
Quarter: 2025Q1

REPORT INFORMATION
  Report Type: Spontaneous
  Country: FR (occurrence: FR)
  Receive Date: 20250313
  Receipt Date: 20250313
  Transmission Date: 20250409
  Serious: Yes (Life-Threatening, Hospitalization, Other)
  Sender: SANOFI AVENTIS
  Company Number: None

PATIENT
  Age: 3 Month
  Sex: Female
  Weight: 2.73 kg

DRUGS (8)
  1. LOVENOX [Suspect]
     Active Substance: ENOXAPARIN SODIUM
     Indication: Cardiac disorder
     Dosage: 6000 IU, BID
     Route: 064
     Dates: start: 202308, end: 20240119
  2. FLUINDIONE [Suspect]
     Active Substance: FLUINDIONE
     Indication: Cardiac disorder
     Route: 064
     Dates: end: 202308
  3. PENICILLIN G BENZATHINE [Suspect]
     Active Substance: PENICILLIN G BENZATHINE
     Dosage: 2.4 10*6.IU, QM
     Route: 064
     Dates: end: 20240119
  4. BISOPROLOL FUMARATE [Suspect]
     Active Substance: BISOPROLOL FUMARATE
     Indication: Cardiac disorder
     Dosage: 10 MG, QD
     Route: 064
     Dates: end: 20240119
  5. FUROSEMIDE [Suspect]
     Active Substance: FUROSEMIDE
     Indication: Cardiac disorder
     Route: 064
     Dates: start: 20231121, end: 20240119
  6. POTASSIUM CHLORIDE [Suspect]
     Active Substance: POTASSIUM CHLORIDE
     Indication: Product used for unknown indication
     Dosage: 1 DF, QD
     Route: 064
     Dates: start: 20231121, end: 20240119
  7. BETAMETHASONE [Suspect]
     Active Substance: BETAMETHASONE
     Indication: Immature respiratory system
     Dosage: 1 DF, QD
     Route: 064
     Dates: start: 20240109, end: 20240110
  8. PRIMPERAN [Concomitant]
     Active Substance: METOCLOPRAMIDE HYDROCHLORIDE
     Indication: Morning sickness
     Dosage: 30 MG, QD
     Route: 064
     Dates: start: 20230814

REACTIONS (9)
  - Foetal growth restriction [Recovered/Resolved]
  - Foetal heart rate disorder [Recovered/Resolved]
  - Neonatal respiratory depression [Recovered/Resolved]
  - Premature baby [Recovered/Resolved]
  - Maternal exposure during pregnancy [Unknown]
  - Neonatal hyperglycaemia [Recovered/Resolved]
  - Neonatal gastrointestinal disorder [Recovered/Resolved]
  - Hospitalisation [Recovered/Resolved]
  - Transfusion [Recovered/Resolved]

NARRATIVE: CASE EVENT DATE: 20230701
